FAERS Safety Report 6285989-0 (Version None)
Quarter: 2009Q3

REPORT INFORMATION
  Report Type: 
  Country: None (occurrence: None)
  Receive Date: 20090728
  Receipt Date: 20090717
  Transmission Date: 20100115
  Serious: Yes (Hospitalization)
  Sender: FDA-Public Use
  Company Number: FR-CELGENEUS-056-20785-09060318

PATIENT
  Sex: Male
  Weight: 60 kg

DRUGS (4)
  1. THALIDOMIDE [Suspect]
     Indication: MULTIPLE MYELOMA
     Route: 048
     Dates: start: 20090213, end: 20090223
  2. ALKERAN [Concomitant]
     Indication: DRUG USE FOR UNKNOWN INDICATION
     Route: 048
  3. PREDNISONE TAB [Concomitant]
     Indication: DRUG USE FOR UNKNOWN INDICATION
     Route: 048
  4. POLYETHYLENE GLYCOL [Concomitant]
     Indication: CONSTIPATION
     Route: 065

REACTIONS (3)
  - ASTHENIA [None]
  - CONSTIPATION [None]
  - PARKINSON'S DISEASE [None]
